FAERS Safety Report 16381860 (Version 6)
Quarter: 2021Q2

REPORT INFORMATION
  Report Type: Other
  Country: DE (occurrence: US)
  Receive Date: 20190603
  Receipt Date: 20210602
  Transmission Date: 20210716
  Serious: Yes (Hospitalization)
  Sender: FDA-Public Use
  Company Number: DE-ROCHE-2325001

PATIENT
  Age: 38 Year
  Sex: Male
  Weight: 89 kg

DRUGS (9)
  1. FENISTIL [Concomitant]
     Active Substance: DIMETHINDENE
     Indication: PANIC ATTACK
     Route: 042
     Dates: start: 20180820, end: 20180820
  2. RANITIDINE. [Concomitant]
     Active Substance: RANITIDINE
     Route: 048
     Dates: start: 20180819, end: 20190226
  3. FINGOLIMOD. [Concomitant]
     Active Substance: FINGOLIMOD
     Dates: start: 201605, end: 201805
  4. ZOPICLON [Concomitant]
     Active Substance: ZOPICLONE
     Dosage: AS REQUIRED
     Route: 048
     Dates: start: 20160101
  5. TAVOR EXPIDET [Concomitant]
     Active Substance: LORAZEPAM
     Indication: PANIC ATTACK
     Route: 048
     Dates: start: 20180915, end: 20180915
  6. OCRELIZUMAB. [Suspect]
     Active Substance: OCRELIZUMAB
     Indication: RELAPSING MULTIPLE SCLEROSIS
     Route: 042
     Dates: start: 20180820, end: 20180903
  7. DEKRISTOL [Concomitant]
     Active Substance: CHOLECALCIFEROL
     Indication: VITAMIN D DEFICIENCY
     Route: 048
     Dates: start: 20160101
  8. AERIUS [Concomitant]
     Route: 048
     Dates: start: 20180819, end: 20190226
  9. PREDNISOLUT [Concomitant]
     Active Substance: PREDNISOLONE
     Route: 042
     Dates: start: 20180820, end: 20190225

REACTIONS (3)
  - Chest pain [Unknown]
  - Panic attack [Recovered/Resolved]
  - Stress [Unknown]

NARRATIVE: CASE EVENT DATE: 20180827
